FAERS Safety Report 6165285-2 (Version None)
Quarter: 2009Q2

REPORT INFORMATION
  Report Type: 
  Country: None (occurrence: None)
  Receive Date: 20090423
  Receipt Date: 20090422
  Transmission Date: 20091009
  Serious: Yes (Disabling, Other)
  Sender: FDA-Public Use
  Company Number: B0568716A

PATIENT
  Age: 44 Year
  Sex: Male

DRUGS (11)
  1. KIVEXA [Suspect]
     Indication: ANTIRETROVIRAL THERAPY
     Route: 048
     Dates: start: 20070723
  2. VIREAD [Suspect]
     Indication: HIV INFECTION
     Route: 048
     Dates: start: 20070723
  3. KALETRA [Suspect]
     Indication: ANTIRETROVIRAL THERAPY
     Route: 048
     Dates: start: 20070723
  4. TORSEMIDE [Concomitant]
     Indication: HEPATIC CIRRHOSIS
     Route: 048
     Dates: start: 20070501
  5. SPIRONOLACTONE [Concomitant]
     Indication: HEPATIC CIRRHOSIS
     Route: 048
     Dates: start: 20070501
  6. SERESTA [Concomitant]
     Indication: PERSONALITY DISORDER
     Route: 048
     Dates: start: 20040101
  7. DIAMORPHINE [Concomitant]
     Route: 065
     Dates: start: 20000101
  8. METHADONE HCL [Concomitant]
     Dosage: 100MG PER DAY
     Route: 065
  9. CO-TRIMOXAZOLE [Concomitant]
     Route: 065
  10. MAGNESIOCARD [Concomitant]
     Route: 065
  11. CALCIMAGON [Concomitant]
     Route: 065
     Dates: start: 20070401

REACTIONS (6)
  - FEMORAL NECK FRACTURE [None]
  - OSTEONECROSIS [None]
  - OSTEOPOROSIS [None]
  - RADIUS FRACTURE [None]
  - RIB FRACTURE [None]
  - SPINAL FRACTURE [None]
